FAERS Safety Report 5565627-2 (Version None)
Quarter: 2007Q4

REPORT INFORMATION
  Report Type: 
  Country: None (occurrence: None)
  Receive Date: 20071218
  Receipt Date: 20071211
  Transmission Date: 20080405
  Serious: Yes (Hospitalization)
  Sender: FDA-Public Use
  Company Number: JP-BOEHRINGER INGELHEIM PHARMACEUTICALS, INC.-2007-DE-05952GD

PATIENT
  Age: 80 Year
  Sex: Female

DRUGS (3)
  1. PRAMIPEXOLE DIHYDROCHLORIDE [Suspect]
     Indication: PARKINSON'S DISEASE
     Dates: end: 20060201
  2. PRAMIPEXOLE DIHYDROCHLORIDE [Suspect]
     Dosage: INITIATED AT 0.125 MG TWICE A DAY FOR 1 WEEK, INCREASED GRADUALLY OVER A 6-WEEK PERIOD TO 1 MG THREE
     Dates: start: 20050301, end: 20060201
  3. CARBIDOPA AND LEVODOPA [Suspect]
     Indication: PARKINSON'S DISEASE
     Dosage: 200 MG LEVODOPA/20 MG CARBIDOPA
     Dates: start: 20030101

REACTIONS (4)
  - GAIT DISTURBANCE [None]
  - POSTURE ABNORMAL [None]
  - TORTICOLLIS [None]
  - VISUAL FIELD DEFECT [None]
